FAERS Safety Report 5829081-5 (Version None)
Quarter: 2008Q3

REPORT INFORMATION
  Report Type: 
  Country: None (occurrence: None)
  Receive Date: 20080731
  Receipt Date: 20080730
  Transmission Date: 20090109
  Serious: Yes (Congenital Anomaly, Other)
  Sender: FDA-Public Use
  Company Number: US-BRISTOL-MYERS SQUIBB COMPANY-14136063

PATIENT
  Sex: Male

DRUGS (8)
  1. STAVUDINE [Suspect]
     Indication: HIV INFECTION
     Route: 064
  2. ISONIAZID [Suspect]
     Indication: TUBERCULOSIS
     Route: 064
  3. CO-TRIMOXAZOLE [Suspect]
     Indication: HIV INFECTION
  4. ETHAMBUTOL HCL [Suspect]
     Indication: TUBERCULOSIS
     Route: 064
  5. LAMIVUDINE [Suspect]
     Indication: HIV INFECTION
     Route: 064
  6. NEVIRAPINE [Suspect]
     Indication: HIV INFECTION
     Route: 064
  7. PYRAZINAMIDE [Suspect]
     Indication: TUBERCULOSIS
     Route: 064
  8. RIFAMPICIN [Suspect]
     Indication: TUBERCULOSIS
     Route: 064

REACTIONS (3)
  - DANDY-WALKER SYNDROME [None]
  - HYDROCEPHALUS [None]
  - PREGNANCY [None]
